FAERS Safety Report 6802051-6 (Version None)
Quarter: 2010Q2

REPORT INFORMATION
  Report Type: 
  Country: None (occurrence: None)
  Receive Date: 20100629
  Receipt Date: 20071018
  Transmission Date: 20101027
  Serious: No
  Sender: FDA-Public Use
  Company Number: US-PFIZER INC-2003025110

PATIENT
  Sex: Male
  Weight: 111.13 kg

DRUGS (8)
  1. TIKOSYN [Suspect]
     Indication: ATRIAL FIBRILLATION
     Dosage: BID
     Route: 048
     Dates: start: 20021001
  2. ANTIFUNGALS FOR TOPICAL USE [Interacting]
     Indication: FUNGAL INFECTION
     Dates: start: 20050101, end: 20050101
  3. ENALAPRIL MALEATE [Concomitant]
  4. WARFARIN [Concomitant]
  5. VITAMINS [Concomitant]
  6. ACETYLSALICYLIC ACID [Concomitant]
  7. XANAX [Concomitant]
  8. TOPROL-XL [Concomitant]

REACTIONS (10)
  - ATRIAL FIBRILLATION [None]
  - BLADDER DISORDER [None]
  - DRUG INTERACTION [None]
  - FUNGAL INFECTION [None]
  - LIPASE INCREASED [None]
  - LOW DENSITY LIPOPROTEIN INCREASED [None]
  - PLATELET COUNT DECREASED [None]
  - STRESS [None]
  - SUPRAVENTRICULAR EXTRASYSTOLES [None]
  - WEIGHT FLUCTUATION [None]
